FAERS Safety Report 20134319 (Version 5)
Quarter: 2022Q2

REPORT INFORMATION
  Report Type: Report from Study
  Country: CO (occurrence: CO)
  Receive Date: 20211201
  Receipt Date: 20220608
  Transmission Date: 20220721
  Serious: Yes (Hospitalization, Other)
  Sender: FDA-Public Use
  Company Number: CO-NOVARTISPH-NVSC2021CO270688

PATIENT
  Sex: Male

DRUGS (1)
  1. VOTRIENT [Suspect]
     Active Substance: PAZOPANIB HYDROCHLORIDE
     Indication: Metastatic renal cell carcinoma
     Dosage: 800 MG, QD
     Route: 048
     Dates: start: 2018

REACTIONS (7)
  - Cerebral ischaemia [Not Recovered/Not Resolved]
  - Cerebral infarction [Unknown]
  - Ill-defined disorder [Unknown]
  - Malaise [Unknown]
  - Pain in extremity [Unknown]
  - Depressed mood [Unknown]
  - Rash [Recovered/Resolved]
